FAERS Safety Report 25924902 (Version 1)
Quarter: 2025Q4

REPORT INFORMATION
  Report Type: Spontaneous
  Country: US (occurrence: US)
  Receive Date: 20251015
  Receipt Date: 20251015
  Transmission Date: 20260118
  Serious: No
  Sender: SHIELD THERAPEUTICS
  Company Number: SHLD2500009

PATIENT
  Age: 82 Year
  Sex: Male

DRUGS (4)
  1. ACCRUFER [Suspect]
     Active Substance: FERRIC MALTOL
     Indication: Iron deficiency
     Dosage: 30 MILLIGRAM, BID
     Route: 048
     Dates: start: 20250109
  2. ACCRUFER [Suspect]
     Active Substance: FERRIC MALTOL
     Indication: Anaemia
  3. CONSTIPATION DRUG [Concomitant]
     Indication: Constipation
     Dosage: UNKNOWN
     Route: 065
  4. CHOLESTEROL DRUGS [Concomitant]
     Indication: Blood cholesterol
     Dosage: UNKNOWN
     Route: 065

REACTIONS (2)
  - Polyuria [Recovered/Resolved]
  - Constipation [Not Recovered/Not Resolved]

NARRATIVE: CASE EVENT DATE: 20250101
